FAERS Safety Report 7176945-9 (Version None)
Quarter: 2010Q4

REPORT INFORMATION
  Report Type: 
  Country: None (occurrence: None)
  Receive Date: 20101220
  Receipt Date: 20101213
  Transmission Date: 20110411
  Serious: Yes (Other)
  Sender: FDA-Public Use
  Company Number: DE-PFIZER INC-2010171143

PATIENT
  Age: 44 Year
  Sex: Male

DRUGS (1)
  1. SUTENT [Suspect]
     Indication: METASTATIC RENAL CELL CARCINOMA
     Dosage: UNK
     Dates: start: 20090801

REACTIONS (4)
  - BLOOD THYROID STIMULATING HORMONE INCREASED [None]
  - HYPERCHOLESTEROLAEMIA [None]
  - HYPERLIPIDAEMIA [None]
  - HYPERTRIGLYCERIDAEMIA [None]
